FAERS Safety Report 10110954 (Version 1)
Quarter: 2014Q2

REPORT INFORMATION
  Report Type: Spontaneous
  Country: CO (occurrence: CO)
  Receive Date: 20140425
  Receipt Date: 20140425
  Transmission Date: 20141212
  Serious: Yes (Other)
  Sender: FDA-Public Use
  Company Number: CO-JNJFOC-20140413942

PATIENT
  Age: 30 Year
  Sex: Female

DRUGS (1)
  1. REMICADE [Suspect]
     Indication: TAKAYASU^S ARTERITIS
     Route: 042
     Dates: start: 2006, end: 2009

REACTIONS (3)
  - Coronary artery disease [Recovering/Resolving]
  - Treatment failure [Unknown]
  - Off label use [Unknown]
